FAERS Safety Report 19995987 (Version 5)
Quarter: 2023Q1

REPORT INFORMATION
  Report Type: Spontaneous
  Country: US (occurrence: US)
  Receive Date: 20211025
  Receipt Date: 20230103
  Transmission Date: 20230417
  Serious: Yes (Other)
  Sender: FDA-Public Use
  Company Number: US-PFIZER INC-202101360972

PATIENT
  Age: 61 Year
  Sex: Female
  Weight: 56.7 kg

DRUGS (4)
  1. PREMPRO [Suspect]
     Active Substance: ESTROGENS, CONJUGATED\MEDROXYPROGESTERONE ACETATE
     Indication: Hormone replacement therapy
     Dosage: 0.625MG/5MG ONCE A NIGHT
     Dates: end: 20211008
  2. PREMPRO [Suspect]
     Active Substance: ESTROGENS, CONJUGATED\MEDROXYPROGESTERONE ACETATE
     Indication: Menopause
     Dosage: 0.625MG/2.5MG EVERY NIGHT
     Dates: start: 202110
  3. PREMPRO [Suspect]
     Active Substance: ESTROGENS, CONJUGATED\MEDROXYPROGESTERONE ACETATE
     Dosage: 1X/DAY (0.3MG ESTROGEN, 1.5MG MEDROXYPROGESTERONE, ONCE EVERY NIGHT)
     Dates: start: 202212
  4. VITAMINS [Concomitant]
     Active Substance: VITAMINS
     Dosage: UNK

REACTIONS (8)
  - Cervix carcinoma [Unknown]
  - Therapeutic product effect incomplete [Unknown]
  - Intermenstrual bleeding [Unknown]
  - Smear cervix abnormal [Unknown]
  - Uterine malposition [Unknown]
  - Uterine leiomyoma [Unknown]
  - Product dispensing error [Unknown]
  - Intentional product misuse [Unknown]

NARRATIVE: CASE EVENT DATE: 20211001
